FAERS Safety Report 7058989-0 (Version None)
Quarter: 2010Q4

REPORT INFORMATION
  Report Type: 
  Country: None (occurrence: None)
  Receive Date: 20101025
  Receipt Date: 20101014
  Transmission Date: 20110411
  Serious: Yes (Hospitalization)
  Sender: FDA-Public Use
  Company Number: US-BIOGENIDEC-2010BI035672

PATIENT
  Age: 54 Year
  Sex: Male

DRUGS (2)
  1. TYSABRI [Suspect]
     Indication: MULTIPLE SCLEROSIS
     Route: 042
     Dates: start: 20080611, end: 20080611
  2. TYSABRI [Suspect]
     Route: 042
     Dates: start: 20100402

REACTIONS (4)
  - DIZZINESS [None]
  - FALL [None]
  - HYPOAESTHESIA [None]
  - WRIST FRACTURE [None]
